FAERS Safety Report 7880396-9 (Version None)
Quarter: 2011Q4

REPORT INFORMATION
  Report Type: 
  Country: None (occurrence: None)
  Receive Date: 20111101
  Receipt Date: 20111024
  Transmission Date: 20120403
  Serious: Yes (Hospitalization, Other)
  Sender: FDA-Public Use
  Company Number: PHEH2011US02567

PATIENT
  Sex: Male
  Weight: 86.168 kg

DRUGS (16)
  1. POTASSIUM [Concomitant]
     Dosage: UNK UKN, UNK
  2. PRILOSEC [Concomitant]
     Dosage: UNK UKN, UNK
  3. HYDREA [Concomitant]
  4. EXJADE [Suspect]
     Indication: IRON OVERLOAD
  5. BUMEX [Concomitant]
     Dosage: UNK UKN, UNK
  6. CALCIUM [Concomitant]
  7. JANUVIA [Concomitant]
     Dosage: UNK UKN, UNK
  8. FOSAMAX [Concomitant]
     Dosage: UNK UKN, UNK
  9. DOXAZOSIN MESYLATE [Concomitant]
     Dosage: UNK UKN, UNK
  10. AVODART [Concomitant]
     Dosage: UNK UKN, UNK
  11. EXJADE [Suspect]
     Indication: HAEMATOPOIETIC NEOPLASM
     Dosage: 1000 MG, DAILY
     Route: 048
     Dates: start: 20100512, end: 20110811
  12. VITAMIN B6 [Concomitant]
     Dosage: UNK UKN, UNK
  13. PREDNISONE [Concomitant]
     Dosage: UNK UKN, UNK
  14. PROZAC [Concomitant]
     Dosage: UNK UKN, UNK
  15. ASPIRIN [Concomitant]
     Dosage: UNK UKN, UNK
  16. SINGULAIR [Concomitant]
     Dosage: UNK UKN, UNK

REACTIONS (13)
  - JOINT INJURY [None]
  - ASTHENIA [None]
  - RENAL FAILURE [None]
  - HAEMOSIDEROSIS [None]
  - CARDIAC MURMUR [None]
  - FATIGUE [None]
  - WEIGHT DECREASED [None]
  - MUSCULOSKELETAL CHEST PAIN [None]
  - BLOOD CREATININE INCREASED [None]
  - DYSPNOEA EXERTIONAL [None]
  - DIZZINESS [None]
  - ANAEMIA [None]
  - THROMBOCYTOPENIA [None]
